FAERS Safety Report 7005750-9 (Version None)
Quarter: 2010Q3

REPORT INFORMATION
  Report Type: 
  Country: None (occurrence: None)
  Receive Date: 20100921
  Receipt Date: 20100909
  Transmission Date: 20110219
  Serious: Yes (Hospitalization)
  Sender: FDA-Public Use
  Company Number: US-ELI_LILLY_AND_COMPANY-US200909000565

PATIENT
  Sex: Male

DRUGS (16)
  1. FORTEO [Suspect]
     Indication: OSTEOPOROSIS
     Dosage: 20 UG, DAILY (1/D)
     Route: 065
     Dates: start: 20090801
  2. FORTEO [Suspect]
     Dosage: 20 UG, DAILY (1/D)
     Route: 065
     Dates: start: 20090830
  3. CALCIUM /N/A/ [Concomitant]
     Dosage: 1000 IU, DAILY (1/D)
  4. ASPIRIN [Concomitant]
     Dosage: 81 MG, DAILY (1/D)
     Route: 065
  5. CLARITIN [Concomitant]
     Dosage: 10 MG, DAILY (1/D)
     Route: 065
  6. COUMADIN [Concomitant]
     Dosage: UNK, DAILY (1/D)
     Route: 065
  7. ISOSORBIDE MONONITRATE [Concomitant]
     Dosage: 30 MG, DAILY (1/D)
     Route: 065
  8. LIPITOR [Concomitant]
     Dosage: 10 MG, DAILY (1/D)
     Route: 065
  9. LISINOPRIL [Concomitant]
     Dosage: 2.5 MG, DAILY (1/D)
     Route: 065
  10. METAMUCIL-2 [Concomitant]
     Dosage: UNK, 2/D
     Route: 065
  11. METOPROLOL [Concomitant]
     Dosage: 12.5 MG, DAILY (1/D)
     Route: 065
  12. VITAMINS [Concomitant]
     Dosage: UNK, DAILY (1/D)
     Route: 065
  13. STOOL SOFTENER [Concomitant]
     Dosage: 100 MG, OTHER
     Route: 065
  14. VITAMIN D [Concomitant]
     Dosage: 2000 IU, DAILY (1/D)
     Route: 065
  15. PLAVIX [Concomitant]
     Dosage: 75 MG, DAILY (1/D)
  16. HYDROQUINONE [Concomitant]
     Dosage: UNK D/F, AS NEEDED

REACTIONS (8)
  - CHEST DISCOMFORT [None]
  - CHEST PAIN [None]
  - CONSTIPATION [None]
  - CORONARY ARTERY OCCLUSION [None]
  - DYSPNOEA [None]
  - FATIGUE [None]
  - GAIT DISTURBANCE [None]
  - STENT PLACEMENT [None]
